FAERS Safety Report 5247568-3 (Version None)
Quarter: 2007Q1

REPORT INFORMATION
  Report Type: 
  Country: None (occurrence: None)
  Receive Date: 20070227
  Receipt Date: 20070215
  Transmission Date: 20070707
  Serious: Yes (Other)
  Sender: FDA-Public Use
  Company Number: PHBS2007CL02942

PATIENT
  Sex: Female

DRUGS (2)
  1. TAREG [Suspect]
     Dosage: 1 TABLET/DAY
     Route: 048
  2. DILATREND [Concomitant]

REACTIONS (1)
  - ARRHYTHMIA [None]
